FAERS Safety Report 12207735 (Version 1)
Quarter: 2016Q1

REPORT INFORMATION
  Report Type: Spontaneous
  Country: US (occurrence: None)
  Receive Date: 20160323
  Receipt Date: 20160323
  Transmission Date: 20160526
  Serious: Yes (Hospitalization)
  Sender: FDA-Public Use
  Company Number: None

PATIENT
  Age: 65 Year
  Sex: Female

DRUGS (1)
  1. FORTEO [Suspect]
     Active Substance: TERIPARATIDE
     Dosage: 250 MCG/ML ONCE DAILY SQ
     Route: 058
     Dates: start: 20150303

REACTIONS (4)
  - Rib fracture [None]
  - Impaired work ability [None]
  - Traumatic lung injury [None]
  - Fall [None]

NARRATIVE: CASE EVENT DATE: 20160207
